FAERS Safety Report 13128835 (Version 2)
Quarter: 2017Q1

REPORT INFORMATION
  Report Type: Report from Study
  Country: ES (occurrence: ES)
  Receive Date: 20170119
  Receipt Date: 20170127
  Transmission Date: 20170428
  Serious: Yes (Life-Threatening, Hospitalization)
  Sender: FDA-Public Use
  Company Number: ES-AMGEN-2013-2094

PATIENT
  Age: 70 Year
  Sex: Male
  Weight: 71.1 kg

DRUGS (14)
  1. PANTOPRAZOL [Concomitant]
     Active Substance: PANTOPRAZOLE SODIUM
     Indication: PROPHYLAXIS
     Dosage: 40 MG, QD
     Route: 048
     Dates: start: 20131115
  2. TAMSULOSINE [Concomitant]
     Active Substance: TAMSULOSIN HYDROCHLORIDE
     Indication: BENIGN PROSTATIC HYPERPLASIA
     Dosage: 0.4 MG, QD
     Route: 048
     Dates: start: 201309
  3. CARFILZOMIB [Suspect]
     Active Substance: CARFILZOMIB
     Indication: PLASMA CELL MYELOMA
     Dosage: 56 MG/M2, PER CHEMO REGIM
     Route: 042
     Dates: start: 20130822
  4. DEXAMETHASONE. [Suspect]
     Active Substance: DEXAMETHASONE
     Indication: PLASMA CELL MYELOMA
     Dosage: 20 MG, PER CHEMO REGIM
     Route: 048
     Dates: start: 20130822
  5. ACETYLSALICYLIC ACID [Concomitant]
     Active Substance: ASPIRIN
     Indication: MYOCARDIAL ISCHAEMIA
     Dosage: UNK
     Route: 048
     Dates: start: 20131115, end: 20131118
  6. ATORVASTATIN [Concomitant]
     Active Substance: ATORVASTATIN
     Indication: MYOCARDIAL ISCHAEMIA
     Dosage: 40 MG, QD
     Route: 048
     Dates: start: 20131120
  7. ACETYLCYSTEINE. [Concomitant]
     Active Substance: ACETYLCYSTEINE
     Indication: COUGH
     Dosage: UNK
     Route: 048
     Dates: start: 20131115, end: 20131122
  8. CODEINE [Concomitant]
     Active Substance: CODEINE
     Indication: COUGH
     Dosage: UNK
     Route: 048
     Dates: start: 20131115, end: 20131122
  9. METAMIZOL [Concomitant]
     Active Substance: METAMIZOLE SODIUM
     Indication: PAIN
     Dosage: UNK
     Route: 048
     Dates: start: 20131120, end: 20131121
  10. TAPENTADOL [Concomitant]
     Active Substance: TAPENTADOL
     Indication: PAIN
     Dosage: 25 MG, QD
     Route: 048
     Dates: start: 20131115, end: 20140518
  11. OMEPRAZOL [Concomitant]
     Active Substance: OMEPRAZOLE
     Indication: PROPHYLAXIS
     Dosage: 20 MG, QD
     Route: 048
     Dates: end: 20131114
  12. ACICLOVIR [Concomitant]
     Active Substance: ACYCLOVIR
     Indication: INFECTION PROPHYLAXIS
     Dosage: 400 MG, BID
     Route: 048
     Dates: start: 20130822, end: 20140808
  13. BISOPROLOL [Concomitant]
     Active Substance: BISOPROLOL
     Indication: MYOCARDIAL ISCHAEMIA
     Dosage: 2.5 MG, QD
     Route: 048
     Dates: start: 20131115
  14. CLOPIDOGREL [Concomitant]
     Active Substance: CLOPIDOGREL BISULFATE
     Indication: MYOCARDIAL ISCHAEMIA
     Dosage: 75 MG, QD
     Route: 048
     Dates: start: 20131115

REACTIONS (2)
  - Pneumonia [Recovered/Resolved]
  - Angina pectoris [Recovered/Resolved]

NARRATIVE: CASE EVENT DATE: 20131218
